FAERS Safety Report 16382510 (Version 2)
Quarter: 2019Q3

REPORT INFORMATION
  Report Type: Report from Study
  Country: US (occurrence: US)
  Receive Date: 20190603
  Receipt Date: 20190710
  Transmission Date: 20191004
  Serious: Yes (Hospitalization)
  Sender: FDA-Public Use
  Company Number: US-DSJP-DSU-2019-119287

PATIENT

DRUGS (12)
  1. TYLENOL [Concomitant]
     Active Substance: ACETAMINOPHEN
     Indication: BACK PAIN
     Dosage: 325 MG, 2 TAB Q6HRS
     Route: 048
     Dates: start: 20190215
  2. DU-176B [Suspect]
     Active Substance: EDOXABAN TOSYLATE
     Dosage: 60 MG, QD
     Route: 048
     Dates: start: 20181211
  3. ATORVASTATIN [Concomitant]
     Active Substance: ATORVASTATIN
     Indication: DYSLIPIDAEMIA
     Dosage: 10 MG, QD
     Route: 048
     Dates: start: 20160101
  4. TYLENOL [Concomitant]
     Active Substance: ACETAMINOPHEN
     Indication: PYREXIA
  5. PRILOSEC [Concomitant]
     Active Substance: OMEPRAZOLE MAGNESIUM
     Indication: GASTROOESOPHAGEAL REFLUX DISEASE
     Dosage: 20 MG, QD
     Route: 048
     Dates: start: 20100101
  6. ASA [Concomitant]
     Active Substance: ASPIRIN
     Indication: TRANSCATHETER AORTIC VALVE IMPLANTATION
  7. AMITRIPTYLINE [Concomitant]
     Active Substance: AMITRIPTYLINE
     Indication: HERPES ZOSTER
     Dosage: 25 MG, QD
     Route: 048
     Dates: start: 20181128
  8. PRESERVISION AREDS [Concomitant]
     Active Substance: MINERALS\VITAMINS
     Indication: EYE OPERATION
     Dosage: 1 UNK, QD
     Route: 048
     Dates: start: 20170101
  9. DU-176B [Suspect]
     Active Substance: EDOXABAN TOSYLATE
     Indication: ATRIAL FIBRILLATION
     Dosage: 60 MG, QD
     Route: 048
     Dates: start: 20181002
  10. ASA [Concomitant]
     Active Substance: ASPIRIN
     Indication: ANTIPLATELET THERAPY
     Dosage: 81 MG, QD
     Route: 048
     Dates: start: 20180608
  11. BENICAR [Concomitant]
     Active Substance: OLMESARTAN MEDOXOMIL
     Indication: HYPERTENSION
     Dosage: 20 MG, QD
     Route: 048
     Dates: start: 20181211
  12. LYRICA [Concomitant]
     Active Substance: PREGABALIN
     Indication: HERPES ZOSTER
     Dosage: 50 MG, BID
     Route: 048
     Dates: start: 20181128

REACTIONS (9)
  - Aphasia [Unknown]
  - Endocarditis [Recovered/Resolved]
  - Gastrointestinal haemorrhage [Recovered/Resolved]
  - Pyrexia [Unknown]
  - Transient ischaemic attack [Recovered/Resolved]
  - Hypokalaemia [Unknown]
  - Urinary tract infection [Recovered/Resolved]
  - Bacteraemia [Unknown]
  - Pyrexia [Unknown]

NARRATIVE: CASE EVENT DATE: 20190509
